FAERS Safety Report 13233670 (Version 2)
Quarter: 2017Q1

REPORT INFORMATION
  Report Type: Spontaneous
  Country: US (occurrence: US)
  Receive Date: 20170215
  Receipt Date: 20170330
  Transmission Date: 20170428
  Serious: Yes (Hospitalization)
  Sender: FDA-Public Use
  Company Number: US-AUROBINDO-AUR-APU-2017-29190

PATIENT
  Age: 83 Year
  Sex: Male
  Weight: 72 kg

DRUGS (8)
  1. DONEPEZIL FILM-COATED TABLETS [Suspect]
     Active Substance: DONEPEZIL
     Indication: MEMORY IMPAIRMENT
     Dosage: 10 MG, UNK
     Route: 048
     Dates: end: 20161201
  2. PRAVASTATIN. [Concomitant]
     Active Substance: PRAVASTATIN
     Indication: PRODUCT USED FOR UNKNOWN INDICATION
     Route: 065
  3. RASAGILINE [Concomitant]
     Active Substance: RASAGILINE
     Indication: PRODUCT USED FOR UNKNOWN INDICATION
     Route: 065
  4. COMPAZINE                          /00013302/ [Concomitant]
     Active Substance: PROCHLORPERAZINE EDISYLATE
     Indication: PRODUCT USED FOR UNKNOWN INDICATION
     Route: 065
  5. LOSARTAN. [Concomitant]
     Active Substance: LOSARTAN
     Indication: PRODUCT USED FOR UNKNOWN INDICATION
     Route: 065
  6. OMEPRAZOLE. [Concomitant]
     Active Substance: OMEPRAZOLE
     Indication: PRODUCT USED FOR UNKNOWN INDICATION
     Route: 065
  7. NORTHERA [Interacting]
     Active Substance: DROXIDOPA
     Indication: PARKINSON^S DISEASE
     Dosage: 400 MG, 3 TIMES A DAY
     Route: 048
     Dates: start: 20161026, end: 20161201
  8. AZILECT [Concomitant]
     Active Substance: RASAGILINE MESYLATE
     Indication: PRODUCT USED FOR UNKNOWN INDICATION
     Route: 065

REACTIONS (8)
  - Fall [Recovered/Resolved]
  - Confusional state [Recovered/Resolved]
  - Balance disorder [Recovering/Resolving]
  - Laceration [Recovered/Resolved]
  - Hallucination [Recovering/Resolving]
  - Drug interaction [Not Recovered/Not Resolved]
  - Delusion [Recovering/Resolving]
  - Condition aggravated [Recovering/Resolving]

NARRATIVE: CASE EVENT DATE: 20161127
